FAERS Safety Report 6796382-6 (Version None)
Quarter: 2010Q3

REPORT INFORMATION
  Report Type: 
  Country: None (occurrence: None)
  Receive Date: 20100622
  Receipt Date: 20100611
  Transmission Date: 20110219
  Serious: Yes (Other)
  Sender: FDA-Public Use
  Company Number: 2010SP033152

PATIENT
  Age: 60 Year
  Sex: Female
  Weight: 50 kg

DRUGS (1)
  1. LORATADINE AND PSEUDOEPHEDRINE SULFATE [Suspect]
     Indication: ALLERGIC COUGH
     Dates: start: 20100501, end: 20100520

REACTIONS (3)
  - ECZEMA [None]
  - PERIORBITAL OEDEMA [None]
  - SWELLING FACE [None]
